FAERS Safety Report 25068779 (Version 1)
Quarter: 2025Q1

REPORT INFORMATION
  Report Type: Spontaneous
  Country: CN (occurrence: CN)
  Receive Date: 20250312
  Receipt Date: 20250312
  Transmission Date: 20250409
  Serious: Yes (Hospitalization, Other)
  Sender: SANOFI AVENTIS
  Company Number: CN-SA-2025SA067421

PATIENT
  Age: 39 Year
  Sex: Female

DRUGS (5)
  1. OXALIPLATIN [Suspect]
     Active Substance: OXALIPLATIN
     Indication: Gastric cancer stage III
     Dosage: 200  MG, Q3W, ON THE FIRST DAY OF TREATMENT
     Route: 041
  2. OXALIPLATIN [Suspect]
     Active Substance: OXALIPLATIN
     Dosage: 200 MG, Q3W, ON THE FIRST DAY OF TREATMENT
     Route: 041
  3. CAPECITABINE [Suspect]
     Active Substance: CAPECITABINE
     Indication: Gastric cancer stage III
     Dosage: 1.5 G, BID (ONCE IN THE MORNING AND ONCE IN THE EVENING), ON THE FIRST DAY
     Route: 048
  4. TICAGRELOR [Suspect]
     Active Substance: TICAGRELOR
     Indication: Gastric cancer stage III
     Dosage: 60 MG, BID, (ONCE IN THE MORNING AND ONCE IN THE EVENING),FROM THE FIRST DAY OF TREATMENT
     Route: 048
  5. SINTILIMAB [Concomitant]
     Active Substance: SINTILIMAB
     Indication: Gastric cancer stage III
     Dosage: 200 MG, Q3W, ON THE FIRST DAY OF TREATMENT
     Route: 042

REACTIONS (7)
  - Drug-induced liver injury [Unknown]
  - Liver disorder [Unknown]
  - Anaemia [Unknown]
  - Hepatic mass [Unknown]
  - Hepatic lesion [Unknown]
  - Oedema [Unknown]
  - Tissue infiltration [Unknown]
